FAERS Safety Report 12420940 (Version 1)
Quarter: 2016Q2

REPORT INFORMATION
  Report Type: Report from Study
  Country: US (occurrence: US)
  Receive Date: 20160531
  Receipt Date: 20160531
  Transmission Date: 20160815
  Serious: Yes (Hospitalization)
  Sender: FDA-Public Use
  Company Number: US-JNJFOC-20160524219

PATIENT
  Sex: Female

DRUGS (14)
  1. FISH OILW/TOCOPHEROL [Concomitant]
  2. COENZYME Q10 [Concomitant]
     Active Substance: UBIDECARENONE
  3. MONASCUS PURPUREUS [Concomitant]
     Active Substance: RED YEAST
  4. MAGNESIUM [Concomitant]
     Active Substance: MAGNESIUM
  5. BIFIDOBACTERIUM LACTIS [Concomitant]
  6. VITAMIN D3 [Concomitant]
     Active Substance: CHOLECALCIFEROL
  7. ROBAXIN [Concomitant]
     Active Substance: METHOCARBAMOL
  8. TELMISARTAN. [Concomitant]
     Active Substance: TELMISARTAN
  9. HYDROCODONE [Concomitant]
     Active Substance: HYDROCODONE
  10. IMBRUVICA [Suspect]
     Active Substance: IBRUTINIB
     Indication: CHRONIC LYMPHOCYTIC LEUKAEMIA
     Route: 048
     Dates: start: 20150109
  11. BENADRYL [Concomitant]
     Active Substance: DIPHENHYDRAMINE HYDROCHLORIDE
  12. COLACE [Concomitant]
     Active Substance: DOCUSATE SODIUM
  13. PROTONIX [Concomitant]
     Active Substance: PANTOPRAZOLE SODIUM
  14. LYRICA [Concomitant]
     Active Substance: PREGABALIN

REACTIONS (1)
  - Surgery [Unknown]
